FAERS Safety Report 15749253 (Version 1)
Quarter: 2018Q4

REPORT INFORMATION
  Report Type: Spontaneous
  Country: US (occurrence: US)
  Receive Date: 20181221
  Receipt Date: 20181221
  Transmission Date: 20190205
  Serious: No
  Sender: FDA-Public Use
  Company Number: US-PFIZER INC-2018524811

PATIENT

DRUGS (8)
  1. TAXOTERE [Suspect]
     Active Substance: DOCETAXEL
     Dosage: UNK
  2. DOCETAXEL ACTAVIS [Suspect]
     Active Substance: DOCETAXEL
     Dosage: UNK
     Dates: start: 20151001, end: 20160122
  3. DOCETAXEL. [Suspect]
     Active Substance: DOCETAXEL
     Dosage: UNK
     Dates: start: 20151001, end: 20160122
  4. DOCETAXEL SUN [Suspect]
     Active Substance: DOCETAXEL
     Dosage: UNK
     Dates: start: 20151001, end: 20160122
  5. DOCETAXEL SANDOZ [Suspect]
     Active Substance: DOCETAXEL
     Dosage: UNK
     Dates: start: 20151001, end: 20160122
  6. DOCETAXEL. [Suspect]
     Active Substance: DOCETAXEL
     Dosage: UNK
     Dates: start: 20151001, end: 20160122
  7. DOCETAXEL. [Suspect]
     Active Substance: DOCETAXEL
     Dosage: UNK
     Dates: start: 20151001, end: 20160122
  8. DOCETAXEL ACCORD [Suspect]
     Active Substance: DOCETAXEL
     Dosage: UNK
     Dates: start: 20151001, end: 20160122

REACTIONS (1)
  - Alopecia [Unknown]
